FAERS Safety Report 7930760-4 (Version None)
Quarter: 2011Q4

REPORT INFORMATION
  Report Type: 
  Country: None (occurrence: None)
  Receive Date: 20111121
  Receipt Date: 20111116
  Transmission Date: 20120403
  Serious: Yes (Other)
  Sender: FDA-Public Use
  Company Number: US-GLAXOSMITHKLINE-A0938194A

PATIENT
  Age: 62 Year
  Sex: Female

DRUGS (4)
  1. AVAPRO [Concomitant]
  2. DIURETIC [Concomitant]
  3. ADVAIR DISKUS 100/50 [Suspect]
     Indication: ASTHMA
     Dosage: 2PUFF PER DAY
     Route: 055
     Dates: start: 20100612
  4. ALBUTEROL [Concomitant]

REACTIONS (5)
  - ASTHMA [None]
  - DYSPHONIA [None]
  - PRODUCT QUALITY ISSUE [None]
  - HEART RATE INCREASED [None]
  - RASH [None]
